FAERS Safety Report 8624591-X (Version None)
Quarter: 2012Q3

REPORT INFORMATION
  Report Type: 
  Country: None (occurrence: None)
  Receive Date: 20120810
  Receipt Date: 20120727
  Transmission Date: 20120928
  Serious: Yes (Other)
  Sender: FDA-Public Use
  Company Number: 1364965

PATIENT
  Age: 77 Year
  Sex: Male
  Weight: 38.5557 kg

DRUGS (7)
  1. PARECOXIB SODIUM [Suspect]
     Indication: ANALGESIC THERAPY
     Dosage: 40 MG ONCE DAILY; 1 DOSE INTRAVENOUS (NOT OTHERWISE SPECIFIED)
     Route: 042
     Dates: start: 20120313, end: 20120313
  2. BISOPROLOL FUMARATE [Concomitant]
  3. (BETAHISTINE) [Concomitant]
  4. ACETAMINOPHEN [Concomitant]
  5. ALLOPURINOL [Concomitant]
  6. GENTAMICIN SULFATE [Suspect]
     Indication: ANTIBIOTIC PROPHYLAXIS
     Dosage: 240 MG ONCE DAILY; 1 DOSE INTRAVENOUS (NOT OTHERWISE SPECIFIED)
     Route: 042
     Dates: start: 20120313, end: 20120313
  7. TRAMADOL HCL [Concomitant]

REACTIONS (1)
  - POSTOPERATIVE RENAL FAILURE [None]
